FAERS Safety Report 6201870-7 (Version None)
Quarter: 2009Q2

REPORT INFORMATION
  Report Type: 
  Country: None (occurrence: None)
  Receive Date: 20090526
  Receipt Date: 20090518
  Transmission Date: 20091009
  Serious: No
  Sender: FDA-Public Use
  Company Number: US-B.I. PHARMACEUTICALS,INC./RIDGEFIELD-2009-BP-06196BP

PATIENT
  Age: 83 Year
  Sex: Female

DRUGS (1)
  1. ZANTAC 75 [Suspect]
     Indication: DYSPEPSIA
     Dosage: 75MG
     Route: 048
     Dates: start: 20090518, end: 20090518

REACTIONS (3)
  - ABDOMINAL DISTENSION [None]
  - DYSPNOEA [None]
  - NAUSEA [None]
